FAERS Safety Report 22287057 (Version 1)
Quarter: 2023Q2

REPORT INFORMATION
  Report Type: Spontaneous
  Country: US (occurrence: US)
  Receive Date: 20230505
  Receipt Date: 20230505
  Transmission Date: 20230722
  Serious: Yes (Disabling)
  Sender: FDA-Public Use
  Company Number: US-SA-SAC20230502000212

PATIENT
  Age: 63 Year
  Sex: Female
  Weight: 65.7 kg

DRUGS (1)
  1. DUPIXENT [Suspect]
     Active Substance: DUPILUMAB
     Indication: Asthma
     Dosage: 300 MG, QOW
     Route: 058
     Dates: start: 2022

REACTIONS (4)
  - Loss of personal independence in daily activities [Unknown]
  - Cough [Unknown]
  - Laryngospasm [Unknown]
  - Middle insomnia [Unknown]

NARRATIVE: CASE EVENT DATE: 20230327
